FAERS Safety Report 9041265 (Version 1)
Quarter: 2013Q1

REPORT INFORMATION
  Report Type: Spontaneous
  Country: US (occurrence: None)
  Receive Date: 20130114
  Receipt Date: 20130114
  Transmission Date: 20140127
  Serious: Yes (Death)
  Sender: FDA-Public Use
  Company Number: DSA_61825_2013

PATIENT
  Age: 78 Year
  Sex: Male

DRUGS (7)
  1. XENAZINE 12.5 MG (NOT SPECIFIED) [Suspect]
     Indication: PRODUCT USED FOR UNKNOWN INDICATION
     Dosage: 1 TABLET IN THE MORNING AND 1/2 TABLET IN THE EVENING
     Route: 048
  2. DETROL [Concomitant]
  3. PLAQUENIL /00072602/ [Concomitant]
  4. LASIX /0032601/ [Concomitant]
  5. LOTREL [Concomitant]
  6. PROZAC [Concomitant]
  7. FLOMAX /00889901/ [Concomitant]

REACTIONS (1)
  - Death [None]
